FAERS Safety Report 21460157 (Version 1)
Quarter: 2022Q4

REPORT INFORMATION
  Report Type: Spontaneous
  Country: US (occurrence: US)
  Receive Date: 20221014
  Receipt Date: 20221014
  Transmission Date: 20230113
  Serious: No
  Sender: FDA-Public Use
  Company Number: US-INDIVIOR US-INDV-130832-2021

PATIENT
  Sex: Male

DRUGS (2)
  1. SUBOXONE [Suspect]
     Active Substance: BUPRENORPHINE HYDROCHLORIDE\NALOXONE HYDROCHLORIDE
     Indication: Product used for unknown indication
     Dosage: UNKNOWN (1/3 OF A STRIP OR MAYBE LESS)
     Route: 065
  2. KLONOPIN [Concomitant]
     Active Substance: CLONAZEPAM
     Indication: Anxiety
     Dosage: UNK
     Route: 065

REACTIONS (4)
  - Inappropriate schedule of product discontinuation [Recovered/Resolved]
  - Wrong technique in product usage process [Recovered/Resolved]
  - Drug withdrawal syndrome [Unknown]
  - Drug dependence [Recovered/Resolved]
